FAERS Safety Report 23252395 (Version 1)
Quarter: 2023Q4

REPORT INFORMATION
  Report Type: Spontaneous
  Country: BE (occurrence: BE)
  Receive Date: 20231201
  Receipt Date: 20231201
  Transmission Date: 20240109
  Serious: Yes (Other)
  Sender: FDA-Public Use
  Company Number: BE-MLMSERVICE-20231110-4648935-1

PATIENT
  Age: 20 Year
  Sex: Female

DRUGS (13)
  1. DEXAMETHASONE [Suspect]
     Active Substance: DEXAMETHASONE
     Indication: Haemophagocytic lymphohistiocytosis
     Dosage: 20 MG TWICE DAILY AT DAY 31
     Route: 065
  2. DEXAMETHASONE [Suspect]
     Active Substance: DEXAMETHASONE
     Indication: Condition aggravated
  3. CYCLOSPORINE [Suspect]
     Active Substance: CYCLOSPORINE
     Indication: Haemophagocytic lymphohistiocytosis
     Dosage: STARTED ON DAY 17
     Route: 065
  4. CYCLOSPORINE [Suspect]
     Active Substance: CYCLOSPORINE
     Indication: Condition aggravated
  5. METHYLPREDNISOLONE [Suspect]
     Active Substance: METHYLPREDNISOLONE
     Indication: Haemophagocytic lymphohistiocytosis
     Route: 065
  6. METHYLPREDNISOLONE [Suspect]
     Active Substance: METHYLPREDNISOLONE
     Indication: Still^s disease
     Dosage: DOSING WAS INCREASED SIGNIFICANTLY WITH TAPERING SCHEDULE AFTERWARDS
     Route: 042
     Dates: start: 2021
  7. METHYLPREDNISOLONE [Suspect]
     Active Substance: METHYLPREDNISOLONE
     Indication: Disseminated intravascular coagulation
     Dosage: WITH TAPERING SCHEDULE AFTERWARDS
     Route: 065
  8. METHYLPREDNISOLONE [Suspect]
     Active Substance: METHYLPREDNISOLONE
     Dosage: HIGH-DOSE SOLUBLE STARTED ON DAY 17
     Route: 065
  9. ETOPOSIDE [Suspect]
     Active Substance: ETOPOSIDE
     Indication: Haemophagocytic lymphohistiocytosis
     Dosage: 100MG/M2 BODY SURFACE [176 MG], TWICE WEEKLY DURING THE FIRST TWO WEEKS DAY 31
     Route: 065
  10. ETOPOSIDE [Suspect]
     Active Substance: ETOPOSIDE
     Indication: Condition aggravated
     Dosage: ONCE WEEKLY FOR THE 6 FOLLOWING WEEKS
     Route: 065
  11. ANAKINRA [Suspect]
     Active Substance: ANAKINRA
     Indication: Still^s disease
     Route: 065
  12. TOCILIZUMAB [Suspect]
     Active Substance: TOCILIZUMAB
     Indication: Still^s disease
     Route: 065
  13. COLCHICINE [Concomitant]
     Active Substance: COLCHICINE
     Indication: Product used for unknown indication
     Route: 065

REACTIONS (1)
  - Cytomegalovirus infection reactivation [Not Recovered/Not Resolved]
